FAERS Safety Report 16399538 (Version 1)
Quarter: 2019Q2

REPORT INFORMATION
  Report Type: Spontaneous
  Country: US (occurrence: US)
  Receive Date: 20190501
  Receipt Date: 20190501
  Transmission Date: 20190711
  Serious: No
  Sender: FDA-Public Use
  Company Number: None

PATIENT
  Age: 76 Year
  Sex: Male

DRUGS (1)
  1. SPRYCEL [Suspect]
     Active Substance: DASATINIB
     Dates: start: 20170118, end: 20190501

REACTIONS (2)
  - Pleural effusion [None]
  - Dyspnoea [None]

NARRATIVE: CASE EVENT DATE: 20190501
